FAERS Safety Report 5810503-0 (Version None)
Quarter: 2008Q3

REPORT INFORMATION
  Report Type: 
  Country: None (occurrence: None)
  Receive Date: 20080715
  Receipt Date: 20080708
  Transmission Date: 20090109
  Serious: Yes (Other)
  Sender: FDA-Public Use
  Company Number: JP-SANOFI-SYNTHELABO-A01200807785

PATIENT
  Age: 28 Year
  Sex: Male
  Weight: 55 kg

DRUGS (5)
  1. IRINOTECAN HCL [Suspect]
     Dosage: UNK
     Route: 042
     Dates: start: 20080610, end: 20080610
  2. CALCIUM LEVOFOLINATE [Suspect]
     Dosage: UNK
     Route: 041
     Dates: start: 20080625, end: 20080626
  3. FLUOROURACIL [Suspect]
     Dosage: UNK
     Route: 042
     Dates: start: 20080625, end: 20080626
  4. ELPLAT [Suspect]
     Indication: COLON CANCER
     Dosage: UNK
     Route: 040
     Dates: start: 20080625, end: 20080625
  5. AVASTIN [Suspect]
     Route: 041
     Dates: start: 20080610, end: 20080610

REACTIONS (3)
  - LARGE INTESTINE PERFORATION [None]
  - RECTAL ULCER [None]
  - TUMOUR HAEMORRHAGE [None]
